FAERS Safety Report 9012513 (Version 2)
Quarter: 2013Q1

REPORT INFORMATION
  Report Type: Spontaneous
  Country: US (occurrence: US)
  Receive Date: 20130114
  Receipt Date: 20130319
  Transmission Date: 20140127
  Serious: No
  Sender: FDA-Public Use
  Company Number: US-PFIZER INC-2013011460

PATIENT
  Age: 56 Year
  Sex: Female
  Weight: 63.5 kg

DRUGS (3)
  1. ESTRING [Suspect]
     Indication: VULVOVAGINAL DRYNESS
     Dosage: UNK
     Route: 067
     Dates: start: 201212, end: 201212
  2. ESTRING [Suspect]
     Dosage: UNK
     Route: 067
     Dates: start: 201301, end: 201301
  3. SUMATRIPTAN [Concomitant]
     Indication: MIGRAINE
     Dosage: UNK, AS NEEDED

REACTIONS (2)
  - Muscle spasms [Unknown]
  - Vaginal infection [Unknown]
